FAERS Safety Report 25425338 (Version 2)
Quarter: 2025Q3

REPORT INFORMATION
  Report Type: Spontaneous
  Country: EU (occurrence: EU)
  Receive Date: 20250611
  Receipt Date: 20250802
  Transmission Date: 20251021
  Serious: Yes (Other)
  Sender: ALEXION PHARMACEUTICALS
  Company Number: EU-AstraZeneca-CH-00754867A

PATIENT
  Age: 8 Year
  Sex: Male

DRUGS (1)
  1. SOLIRIS [Suspect]
     Active Substance: ECULIZUMAB
     Indication: Atypical haemolytic uraemic syndrome

REACTIONS (8)
  - Haemoglobin abnormal [Unknown]
  - Platelet count abnormal [Recovered/Resolved]
  - Blood creatinine abnormal [Unknown]
  - Blood urea abnormal [Unknown]
  - Blood lactate dehydrogenase abnormal [Unknown]
  - Off label use [Unknown]
  - Balance disorder [Unknown]
  - Complement factor C3 decreased [Unknown]
